FAERS Safety Report 10993158 (Version 2)
Quarter: 2015Q2

REPORT INFORMATION
  Report Type: Spontaneous
  Country: GB (occurrence: GB)
  Receive Date: 20150407
  Receipt Date: 20150414
  Transmission Date: 20150821
  Serious: Yes (Other)
  Sender: FDA-Public Use
  Company Number: GB-ROCHE-1559996

PATIENT
  Sex: Female

DRUGS (3)
  1. PARACETAMOL [Concomitant]
     Active Substance: ACETAMINOPHEN
  2. HERCEPTIN [Suspect]
     Active Substance: TRASTUZUMAB
     Indication: HER-2 POSITIVE BREAST CANCER
     Route: 058
     Dates: start: 201406
  3. GLYCEROL [Concomitant]
     Active Substance: GLYCERIN
     Route: 065

REACTIONS (3)
  - Constipation [Not Recovered/Not Resolved]
  - Abdominal discomfort [Unknown]
  - Abdominal hernia [Recovering/Resolving]

NARRATIVE: CASE EVENT DATE: 20150320
